FAERS Safety Report 15016104 (Version 1)
Quarter: 2018Q2

REPORT INFORMATION
  Report Type: Report from Study
  Country: US (occurrence: US)
  Receive Date: 20180615
  Receipt Date: 20180615
  Transmission Date: 20180711
  Serious: Yes (Other)
  Sender: FDA-Public Use
  Company Number: US-JNJFOC-20180400452

PATIENT
  Sex: Male

DRUGS (1)
  1. IMBRUVICA [Suspect]
     Active Substance: IBRUTINIB
     Indication: CHRONIC LYMPHOCYTIC LEUKAEMIA
     Route: 048

REACTIONS (8)
  - Cataract [Unknown]
  - Anaemia [Unknown]
  - Melaena [Unknown]
  - Gait disturbance [Unknown]
  - Arrhythmia [Unknown]
  - Contusion [Unknown]
  - Staphylococcal infection [Unknown]
  - Ulcer [Unknown]
